FAERS Safety Report 14502286 (Version 1)
Quarter: 2018Q1

REPORT INFORMATION
  Report Type: Spontaneous
  Country: None (occurrence: None)
  Receive Date: 20180208
  Receipt Date: 20180208
  Transmission Date: 20180509
  Serious: Yes (Other)
  Sender: FDA-Public Use
  Company Number: VISTAPHARM, INC.-VER201801-000303

PATIENT

DRUGS (2)
  1. LACTULOSE. [Suspect]
     Active Substance: LACTULOSE
     Indication: HEPATIC CIRRHOSIS
  2. LACTULOSE. [Suspect]
     Active Substance: LACTULOSE
     Indication: HEPATIC ENCEPHALOPATHY

REACTIONS (1)
  - Pneumatosis intestinalis [Unknown]
